FAERS Safety Report 22009642 (Version 1)
Quarter: 2023Q1

REPORT INFORMATION
  Report Type: Spontaneous
  Country: GB (occurrence: GB)
  Receive Date: 20230220
  Receipt Date: 20230220
  Transmission Date: 20230418
  Serious: Yes (Death)
  Sender: FDA-Public Use
  Company Number: None

PATIENT
  Age: 42 Year
  Sex: Female

DRUGS (34)
  1. SIMVASTATIN [Suspect]
     Active Substance: SIMVASTATIN
     Dosage: AT BEDTIME
     Route: 048
     Dates: start: 20221214, end: 20221221
  2. ACETYLCYSTEINE [Concomitant]
     Active Substance: ACETYLCYSTEINE
     Dosage: LEFT EYE
     Dates: start: 20221221
  3. CALCIUM CARBONATE\CHOLECALCIFEROL [Concomitant]
     Active Substance: CALCIUM CARBONATE\CHOLECALCIFEROL
     Dosage: 1.5 GRAM, BID
     Route: 048
     Dates: start: 20221213
  4. BECLOMETHASONE DIPROPIONATE [Concomitant]
     Active Substance: BECLOMETHASONE DIPROPIONATE
     Dosage: 200 MICROGRAM, BID (ADDITIONAL INFORMATION: INHALER CHLOROFLUOROCARBON (CFC) FREE)
     Route: 055
     Dates: start: 20221220
  5. ALFENTANIL [Concomitant]
     Active Substance: ALFENTANIL
     Dosage: 17 MILLILITER
     Route: 058
     Dates: start: 20221219
  6. DEXAMETHASONE [Concomitant]
     Active Substance: DEXAMETHASONE
     Dosage: LEFT EYE
     Dates: start: 20221219
  7. DOBUTAMINE [Concomitant]
     Active Substance: DOBUTAMINE HYDROCHLORIDE
     Dosage: CENTRAL
     Route: 042
     Dates: start: 20221220
  8. DEXTROSE [Concomitant]
     Active Substance: DEXTROSE
     Dosage: 500 MILLILITER, QH
     Route: 042
     Dates: start: 20221219
  9. KABIVEN [Concomitant]
     Active Substance: AMINO ACIDS\ANHYDROUS DEXTROSE\CALCIUM CHLORIDE\MAGNESIUM SULFATE HEPTAHYDRATE\POTASSIUM CHLORIDE\SO
     Dosage: 1 BAG(S)
     Route: 042
     Dates: start: 20221219, end: 20221220
  10. FENTANYL [Concomitant]
     Active Substance: FENTANYL
     Dosage: 4MICROGRAM/ML. 500ML INFUSION.
     Route: 008
     Dates: start: 20221219
  11. LEVOBUPIVACAINE [Concomitant]
     Active Substance: LEVOBUPIVACAINE
     Dosage: 500 MILLILITER
     Route: 008
     Dates: start: 20221219
  12. NOREPINEPHRINE [Concomitant]
     Active Substance: NOREPINEPHRINE
     Dosage: CENTRAL
     Route: 042
     Dates: start: 20221220
  13. NOVORAPID [Concomitant]
     Active Substance: INSULIN ASPART
     Dosage: REFER TO STRUCTURED NOTES FOR REGIMEN UNSCHEDULED
     Route: 058
     Dates: start: 20221219, end: 20221220
  14. HUMAN RED BLOOD CELL [Concomitant]
     Active Substance: HUMAN RED BLOOD CELL
     Dosage: ALIQUOT(S) OR UNIT(S) TO PRESCRIBED VOLU UNSCHEDULED. 4 DOSES.
     Route: 042
     Dates: start: 20221219
  15. ISONIAZID\RIFAMPIN [Concomitant]
     Active Substance: ISONIAZID\RIFAMPIN
     Indication: Tuberculosis
     Dosage: 150 MG-100 MG
     Route: 048
     Dates: start: 20221221
  16. TIMOLOL [Concomitant]
     Active Substance: TIMOLOL
     Dosage: LEFT EYE
     Dates: start: 20221220
  17. CHLORTETRACYCLINE\CLOBETASONE\NYSTATIN [Concomitant]
     Active Substance: CHLORTETRACYCLINE\CLOBETASONE\NYSTATIN
     Route: 061
     Dates: start: 20221214
  18. WARFARIN [Concomitant]
     Active Substance: WARFARIN
     Dosage: AT MIDDAY
     Route: 048
     Dates: start: 20221220
  19. AMOXICILLIN [Concomitant]
     Active Substance: AMOXICILLIN
     Indication: Pneumonia
     Dosage: 1 GRAM, TID
     Route: 048
     Dates: start: 20221220
  20. APIXABAN [Concomitant]
     Active Substance: APIXABAN
     Indication: Atrial fibrillation
     Dosage: 5 MILLIGRAM, BID
     Route: 048
     Dates: start: 20221220
  21. ASPIRIN [Concomitant]
     Active Substance: ASPIRIN
     Dosage: MORNING
     Route: 048
     Dates: start: 20221215
  22. CLONAZEPAM [Concomitant]
     Active Substance: CLONAZEPAM
     Dosage: AT BEDTIME
     Route: 048
     Dates: start: 20221220
  23. DIAZEPAM [Concomitant]
     Active Substance: DIAZEPAM
     Dosage: AT BEDTIME
     Route: 048
     Dates: start: 20221219
  24. ENOXAPARIN [Concomitant]
     Active Substance: ENOXAPARIN
     Indication: Embolism venous
     Dosage: EVERY EVENING AT 6PM
     Route: 058
     Dates: start: 20221214
  25. IBUPROFEN [Concomitant]
     Active Substance: IBUPROFEN
     Dosage: 400 MILLIGRAM, TID
     Route: 048
     Dates: start: 20221219
  26. IMMUNE GLOBULIN NOS [Concomitant]
     Active Substance: IMMUNE GLOBULIN NOS
     Indication: Immune thrombocytopenia
     Dosage: FOR 3 DAY(S)
     Route: 042
     Dates: start: 20221220, end: 20221223
  27. METFORMIN [Concomitant]
     Active Substance: METFORMIN HYDROCHLORIDE
     Dosage: AT 8AM AND 6PM
     Route: 048
     Dates: start: 20221219
  28. MORPHINE SULFATE [Concomitant]
     Active Substance: MORPHINE SULFATE
     Dosage: (ADDITIVE FOR INFUSION) 1-2MG PRN FOR 5 DOSE(S)10 MG TWICE A DAY ORAL
     Route: 042
     Dates: start: 20221219
  29. ONDANSETRON [Concomitant]
     Active Substance: ONDANSETRON
     Dosage: ORAL/ INTRAVENOUS/ INTRAMUSCULAR
     Dates: start: 20221221
  30. OXYGEN [Concomitant]
     Active Substance: OXYGEN
     Dosage: 2 L/MIN AS REQUIRED INHALED
     Route: 055
     Dates: start: 20221219
  31. PREDNISOLONE [Concomitant]
     Active Substance: PREDNISOLONE
     Dosage: EVERY MORNING
     Route: 048
     Dates: start: 20221221, end: 20221222
  32. ALBUTEROL [Concomitant]
     Active Substance: ALBUTEROL
     Dosage: 200 MICROGRAM, QD
     Route: 042
     Dates: start: 20221220
  33. VALPROATE SODIUM [Concomitant]
     Active Substance: VALPROATE SODIUM
     Dosage: FORMULATION: GASTRO-RESISTANT CAPSULE
     Route: 048
     Dates: start: 20221220
  34. SODIUM CHLORIDE [Concomitant]
     Active Substance: SODIUM CHLORIDE
     Dosage: DILUENT FOR PATIENT CONTROLLED ANALGESIA (PCA)

REACTIONS (2)
  - Myalgia [Fatal]
  - Death [Fatal]
